FAERS Safety Report 23509363 (Version 1)
Quarter: 2024Q1

REPORT INFORMATION
  Report Type: Other
  Country: GB (occurrence: GB)
  Receive Date: 20240210
  Receipt Date: 20240210
  Transmission Date: 20240410
  Serious: Yes (Life-Threatening)
  Sender: FDA-Public Use
  Company Number: None

PATIENT
  Age: 43 Year
  Sex: Male
  Weight: 105 kg

DRUGS (4)
  1. BUSPIRONE HYDROCHLORIDE [Suspect]
     Active Substance: BUSPIRONE HYDROCHLORIDE
     Indication: Anxiety
     Dosage: 10 MG TABLET TID
     Route: 065
     Dates: start: 202009
  2. MORPHINE [Suspect]
     Active Substance: MORPHINE
     Indication: Pain
     Dosage: 25MG TABLET  BD - REDUCED TO 20MG TABLET BD
     Route: 065
     Dates: start: 202102
  3. LOFEPRAMINE [Suspect]
     Active Substance: LOFEPRAMINE
     Indication: Depression
     Dosage: 70MG  TABLET TDS
     Route: 065
     Dates: start: 201806
  4. PREGABALIN [Suspect]
     Active Substance: PREGABALIN
     Indication: Pain
     Dosage: 300MG  CAPSULE BD
     Route: 065
     Dates: start: 2015

REACTIONS (1)
  - Respiratory depression [Not Recovered/Not Resolved]
